FAERS Safety Report 4524628-3 (Version None)
Quarter: 2004Q4

REPORT INFORMATION
  Report Type: 
  Country: None (occurrence: None)
  Receive Date: 20041117
  Receipt Date: 20030501
  Transmission Date: 20050328
  Serious: Yes (Other)
  Sender: FDA-Public Use
  Company Number: C2003-1107.01

PATIENT
  Age: 15 Year
  Sex: Male

DRUGS (4)
  1. CLOZAPINE [Suspect]
     Indication: SCHIZOPHRENIA
     Dosage: 50 MG Q AM AND Q HS, ORAL
     Route: 048
     Dates: start: 20030301
  2. CLOZAPINE [Suspect]
     Indication: SCHIZOPHRENIA
     Dosage: 100MG Q AM, 200MG Q HS, ORAL
     Route: 048
     Dates: start: 20030301
  3. QUETIAPINE FUMARATE [Concomitant]
  4. BENZTROPINE MESYLATE [Concomitant]

REACTIONS (1)
  - SALIVARY HYPERSECRETION [None]
